FAERS Safety Report 5025225-6 (Version None)
Quarter: 2006Q2

REPORT INFORMATION
  Report Type: 
  Country: None (occurrence: None)
  Receive Date: 20060613
  Receipt Date: 20060523
  Transmission Date: 20061013
  Serious: Yes (Hospitalization)
  Sender: FDA-Public Use
  Company Number: US-AMGEN-US180592

PATIENT
  Sex: Male
  Weight: 92.2 kg

DRUGS (10)
  1. ARANESP [Suspect]
     Indication: RENAL FAILURE CHRONIC
     Route: 058
     Dates: start: 20060417, end: 20060511
  2. FOLIC ACID [Concomitant]
     Route: 048
  3. ACTOS [Concomitant]
  4. CLONIDINE [Concomitant]
     Route: 048
  5. NIFEDIPINE [Concomitant]
     Route: 048
  6. NOVOLIN 70/30 [Concomitant]
     Route: 058
  7. BENADRYL [Concomitant]
     Route: 042
     Dates: start: 20060511
  8. KYTRIL [Concomitant]
     Route: 042
     Dates: start: 20060511
  9. VALACYCLOVIR HCL [Concomitant]
     Dates: start: 20060417, end: 20060501
  10. SODIUM CHLORIDE [Concomitant]

REACTIONS (12)
  - ASTHENIA [None]
  - BLOOD PRESSURE INCREASED [None]
  - DYSARTHRIA [None]
  - HEADACHE [None]
  - HYPERSENSITIVITY [None]
  - HYPOAESTHESIA [None]
  - HYPOGLYCAEMIA [None]
  - MUSCULAR WEAKNESS [None]
  - NAUSEA [None]
  - RASH [None]
  - SWELLING FACE [None]
  - VOMITING [None]
